FAERS Safety Report 24445478 (Version 3)
Quarter: 2024Q4

REPORT INFORMATION
  Report Type: Spontaneous
  Country: DE (occurrence: DE)
  Receive Date: 20241016
  Receipt Date: 20241024
  Transmission Date: 20250115
  Serious: No
  Sender: SANOFI AVENTIS
  Company Number: DE-SA-2024SA292880

PATIENT
  Age: 77 Year
  Sex: Female

DRUGS (2)
  1. ENOXAPARIN SODIUM [Suspect]
     Active Substance: ENOXAPARIN SODIUM
     Dosage: 40 MG, BID
  2. EPLERENONE [Concomitant]
     Active Substance: EPLERENONE
     Indication: Cardiac disorder
     Dosage: UNK
     Dates: start: 20241001

REACTIONS (2)
  - Pruritus [Unknown]
  - Incorrect dose administered [Unknown]
